FAERS Safety Report 6035931-2 (Version None)
Quarter: 2009Q1

REPORT INFORMATION
  Report Type: 
  Country: None (occurrence: None)
  Receive Date: 20090113
  Receipt Date: 20090109
  Transmission Date: 20090719
  Serious: Yes (Hospitalization)
  Sender: FDA-Public Use
  Company Number: B0550817A

PATIENT
  Age: 68 Year
  Sex: Female

DRUGS (4)
  1. VENTOLIN [Suspect]
     Indication: ASTHMA
     Dosage: 5ML PER DAY
     Route: 055
     Dates: start: 20081212, end: 20081212
  2. SEREVENT [Concomitant]
     Indication: ASTHMA
     Dosage: 100MCG PER DAY
     Route: 055
  3. PULMICORT-100 [Concomitant]
     Indication: DRUG USE FOR UNKNOWN INDICATION
     Dosage: 800MCG PER DAY
     Route: 055
  4. KIPRES [Concomitant]
     Indication: DRUG USE FOR UNKNOWN INDICATION
     Dosage: 10MG PER DAY
     Route: 048

REACTIONS (6)
  - FEELING ABNORMAL [None]
  - HYPERHIDROSIS [None]
  - HYPOKALAEMIA [None]
  - MALAISE [None]
  - OVERDOSE [None]
  - PALPITATIONS [None]
